FAERS Safety Report 11122985 (Version 2)
Quarter: 2015Q2

REPORT INFORMATION
  Report Type: Report from Study
  Country: US (occurrence: US)
  Receive Date: 20150519
  Receipt Date: 20150528
  Transmission Date: 20150821
  Serious: Yes (Hospitalization, Other)
  Sender: FDA-Public Use
  Company Number: US-TAKEDA-2015TUS006476

PATIENT
  Age: 68 Year
  Sex: Male

DRUGS (1)
  1. VEDOLIZUMAB [Suspect]
     Active Substance: VEDOLIZUMAB
     Indication: COLITIS ULCERATIVE
     Dosage: 300 MG, VIAL
     Route: 065

REACTIONS (2)
  - Drug ineffective [Unknown]
  - Colon adenoma [Recovered/Resolved]

NARRATIVE: CASE EVENT DATE: 20150408
